FAERS Safety Report 9120272 (Version 5)
Quarter: 2013Q2

REPORT INFORMATION
  Report Type: Report from Study
  Country: NZ (occurrence: NZ)
  Receive Date: 20130226
  Receipt Date: 20130517
  Transmission Date: 20140414
  Serious: Yes (Death)
  Sender: FDA-Public Use
  Company Number: PHHY2013NZ018480

PATIENT
  Age: 66 Year
  Sex: Female

DRUGS (20)
  1. CLOZARIL [Suspect]
     Indication: SCHIZOAFFECTIVE DISORDER
     Dosage: 300 MG
     Route: 048
     Dates: start: 20090612, end: 20130221
  2. MOVICOL [Concomitant]
     Dosage: UNK UKN, UNK
     Route: 048
     Dates: start: 20130221
  3. PROTAMINE [Concomitant]
     Dosage: UNK UKN, UNK
     Route: 058
     Dates: start: 20130221
  4. CLONAZEPAM [Concomitant]
     Dosage: 1000 MG, UNK
     Route: 048
     Dates: start: 20130221
  5. SERETIDE [Concomitant]
     Dosage: UNK UKN, UNK
     Route: 048
     Dates: start: 20130221
  6. CHOLECALCIFEROL [Concomitant]
     Dosage: 25 UKN, UNK
     Route: 048
     Dates: start: 20130221
  7. LITHIUM [Concomitant]
     Dosage: 250 MG, UNK
     Route: 048
     Dates: start: 20130221
  8. LAXOL//DOCUSATE SODIUM [Concomitant]
     Dosage: UNK UKN, UNK
     Route: 048
     Dates: start: 20130221
  9. THYROXINE [Concomitant]
     Dosage: 100 MG, UNK
     Route: 048
     Dates: start: 20130221
  10. SODIUM VALPROATE [Concomitant]
     Dosage: 500 UKN, UNK
     Route: 048
     Dates: start: 20130221
  11. LORAZEPAM [Concomitant]
     Dosage: UNK UKN, UNK
     Route: 048
     Dates: start: 20130221
  12. ZIPRASIDONE [Concomitant]
     Dosage: 40 UKN, UNK
     Route: 048
     Dates: start: 20130221
  13. PARACETAMOL [Concomitant]
     Dosage: 500 MG, UNK
     Route: 048
     Dates: start: 20130221
  14. OMEPRAZOLE [Concomitant]
     Dosage: 20 MG, UNK
     Route: 048
     Dates: start: 20130221
  15. GLUCAGEN [Concomitant]
     Dosage: UNK UKN, PRN
     Dates: start: 20130221
  16. VENTOLIN                           /00942701/ [Concomitant]
     Dosage: 5 UKN, PRN
     Dates: start: 20130221
  17. MORPHINE [Concomitant]
     Dosage: 10 UG, PRN
     Route: 048
     Dates: start: 20130221
  18. METOCLOPRAMIDE [Concomitant]
     Dosage: 10 MG, PRN
     Route: 048
     Dates: start: 20130221
  19. HALOPERIDOL [Concomitant]
     Dosage: 1 MG, PRN
     Route: 058
     Dates: start: 20130221
  20. BISOPROLOL [Concomitant]
     Dosage: 20 MG, PRN
     Route: 058
     Dates: start: 20130221

REACTIONS (7)
  - Mental disorder [Fatal]
  - Cerebrovascular accident [Fatal]
  - Hemiparesis [Fatal]
  - Dysphagia [Fatal]
  - Pneumonia [Fatal]
  - Quality of life decreased [Unknown]
  - Tachycardia [Unknown]
